FAERS Safety Report 6249155-7 (Version None)
Quarter: 2009Q2

REPORT INFORMATION
  Report Type: 
  Country: None (occurrence: None)
  Receive Date: 20090624
  Receipt Date: 20090624
  Transmission Date: 20091009
  Serious: Yes (Other)
  Sender: FDA-Public Use
  Company Number: None

PATIENT
  Age: 78 Year
  Sex: Male
  Weight: 79.3795 kg

DRUGS (2)
  1. POLYSPORIN [Suspect]
     Indication: LACERATION
     Dates: start: 20090303, end: 20090623
  2. POLYSPORIN [Suspect]
     Indication: SCRATCH
     Dates: start: 20090303, end: 20090623

REACTIONS (2)
  - DRUG HYPERSENSITIVITY [None]
  - PRODUCT LABEL ISSUE [None]
